FAERS Safety Report 21132085 (Version 1)
Quarter: 2022Q3

REPORT INFORMATION
  Report Type: Spontaneous
  Country: US (occurrence: None)
  Receive Date: 20220726
  Receipt Date: 20220726
  Transmission Date: 20221027
  Serious: Yes (Other)
  Sender: FDA-Public Use
  Company Number: None

PATIENT
  Age: 57 Year
  Sex: Female

DRUGS (1)
  1. COSENTYX [Suspect]
     Active Substance: SECUKINUMAB
     Indication: Psoriatic arthropathy
     Route: 058
     Dates: start: 202112

REACTIONS (6)
  - Lyme disease [None]
  - Nausea [None]
  - Vomiting [None]
  - Pain [None]
  - Swelling [None]
  - Therapy interrupted [None]

NARRATIVE: CASE EVENT DATE: 20220702
